FAERS Safety Report 15698818 (Version 1)
Quarter: 2018Q4

REPORT INFORMATION
  Report Type: Spontaneous
  Country: JP (occurrence: JP)
  Receive Date: 20181207
  Receipt Date: 20181207
  Transmission Date: 20190205
  Serious: Yes (Life-Threatening, Hospitalization, Other)
  Sender: FDA-Public Use
  Company Number: JP-MYLANLABS-2018M1088192

PATIENT
  Age: 32 Year
  Sex: Male
  Weight: 61 kg

DRUGS (9)
  1. PROPOFOL. [Suspect]
     Active Substance: PROPOFOL
     Indication: MAINTENANCE OF ANAESTHESIA
     Dosage: 3.0 MICROG/ML
     Route: 050
  2. PHENYTOIN. [Interacting]
     Active Substance: PHENYTOIN
     Indication: GENERALISED TONIC-CLONIC SEIZURE
     Dosage: 750 MILLIGRAM, QD
     Route: 042
  3. LEVOBUPIVACAINE [Suspect]
     Active Substance: LEVOBUPIVACAINE
     Indication: LOCAL ANAESTHESIA
     Route: 050
  4. PHENYTOIN. [Interacting]
     Active Substance: PHENYTOIN
     Dosage: ADDED MORE AS NEEDED IN ORDER TO MAINTAIN AN EFFECT CONCENTRATION
     Route: 042
  5. LEVETIRACETAM. [Concomitant]
     Active Substance: LEVETIRACETAM
     Indication: GENERALISED TONIC-CLONIC SEIZURE
     Route: 065
  6. REMIFENTANIL [Concomitant]
     Active Substance: REMIFENTANIL
     Indication: ANALGESIC THERAPY
     Route: 065
  7. PROPOFOL. [Suspect]
     Active Substance: PROPOFOL
     Dosage: MAKING ADJUSTMENTS TO KEEP THE TARGET CONCENTRATION WITHIN THE RANGE OF 2.5-3.5 MICROG/ML
     Route: 050
  8. PROPOFOL. [Suspect]
     Active Substance: PROPOFOL
     Dosage: UNSPECIFIED LARGE DOSE
     Route: 050
  9. VALPROIC ACID. [Suspect]
     Active Substance: VALPROIC ACID
     Indication: GENERALISED TONIC-CLONIC SEIZURE
     Route: 048

REACTIONS (6)
  - Laryngospasm [Recovered/Resolved]
  - Drug interaction [Recovered/Resolved]
  - Somnolence [Recovered/Resolved]
  - Brain oedema [Recovering/Resolving]
  - Tumour haemorrhage [Recovering/Resolving]
  - Seizure [Recovered/Resolved]
